FAERS Safety Report 6187557-8 (Version None)
Quarter: 2009Q2

REPORT INFORMATION
  Report Type: 
  Country: None (occurrence: None)
  Receive Date: 20090508
  Receipt Date: 20090430
  Transmission Date: 20091009
  Serious: Yes (Hospitalization, Disabling)
  Sender: FDA-Public Use
  Company Number: OSCN-GE-0704S-0168

PATIENT
  Age: 78 Year
  Sex: Male
  Weight: 82 kg

DRUGS (6)
  1. OMNISCAN [Suspect]
     Indication: AORTIC ANEURYSM
     Dosage: 42 ML, SINGLE DOSE, I.V.; 40 ML, SINGLE DOSE, I.V.;
     Route: 042
     Dates: start: 20030620, end: 20030620
  2. OMNISCAN [Suspect]
     Indication: ISCHAEMIA
     Dosage: 42 ML, SINGLE DOSE, I.V.; 40 ML, SINGLE DOSE, I.V.;
     Route: 042
     Dates: start: 20030620, end: 20030620
  3. OMNISCAN [Suspect]
     Indication: PERIPHERAL ARTERIAL OCCLUSIVE DISEASE
     Dosage: 42 ML, SINGLE DOSE, I.V.; 40 ML, SINGLE DOSE, I.V.;
     Route: 042
     Dates: start: 20030620, end: 20030620
  4. OMNISCAN [Suspect]
     Indication: AORTIC ANEURYSM
     Dosage: 42 ML, SINGLE DOSE, I.V.; 40 ML, SINGLE DOSE, I.V.;
     Route: 042
     Dates: start: 20030626, end: 20030626
  5. OMNISCAN [Suspect]
     Indication: ISCHAEMIA
     Dosage: 42 ML, SINGLE DOSE, I.V.; 40 ML, SINGLE DOSE, I.V.;
     Route: 042
     Dates: start: 20030626, end: 20030626
  6. OMNISCAN [Suspect]
     Indication: PERIPHERAL ARTERIAL OCCLUSIVE DISEASE
     Dosage: 42 ML, SINGLE DOSE, I.V.; 40 ML, SINGLE DOSE, I.V.;
     Route: 042
     Dates: start: 20030626, end: 20030626

REACTIONS (11)
  - DIALYSIS [None]
  - GENERALISED ERYTHEMA [None]
  - HYPOPROTEINAEMIA [None]
  - MOBILITY DECREASED [None]
  - MULTI-ORGAN FAILURE [None]
  - POSTOPERATIVE RENAL FAILURE [None]
  - RESPIRATORY FAILURE [None]
  - SKIN INDURATION [None]
  - SKIN REACTION [None]
  - SKIN SWELLING [None]
  - UPPER GASTROINTESTINAL HAEMORRHAGE [None]
